FAERS Safety Report 6077040-2 (Version None)
Quarter: 2009Q1

REPORT INFORMATION
  Report Type: 
  Country: None (occurrence: None)
  Receive Date: 20090211
  Receipt Date: 20090211
  Transmission Date: 20090719
  Serious: Yes (Other)
  Sender: FDA-Public Use
  Company Number: None

PATIENT
  Sex: Female
  Weight: 77.27 kg

DRUGS (14)
  1. AVELOX [Suspect]
     Dosage: 400MG TABLET 400 MG QD ORAL
     Route: 048
     Dates: start: 20090209, end: 20090211
  2. ALLOPURINOL [Concomitant]
  3. ARIMIDEX [Concomitant]
  4. GLIPIZIDE [Concomitant]
  5. LANTUS [Concomitant]
  6. LEVOTHYROXINE SODIUM [Concomitant]
  7. LISINOPRIL [Concomitant]
  8. LORAZEPAM [Concomitant]
  9. METFORMIN [Concomitant]
  10. MULTIVITAMIN THERAPEUTIC (THERAPEUTIC MULTIVITAMINS) [Concomitant]
  11. SIMVASTATIN [Concomitant]
  12. TUSSIONEX (HYDROCODONE 10MG + CHLORPHENIRAMINE 8MG) [Concomitant]
  13. VENLAFAXINE EXTENDED RELEASE [Concomitant]
  14. VIACTIV (CALCIUM/ERGOCALCIFEROL/PHYTONADIONE) [Concomitant]

REACTIONS (1)
  - DIZZINESS [None]
